FAERS Safety Report 6745022-0 (Version None)
Quarter: 2010Q2

REPORT INFORMATION
  Report Type: 
  Country: None (occurrence: None)
  Receive Date: 20100527
  Receipt Date: 20100524
  Transmission Date: 20101027
  Serious: Yes (Hospitalization)
  Sender: FDA-Public Use
  Company Number: US-GILEAD-2010-0029097

PATIENT
  Sex: Male

DRUGS (17)
  1. LETAIRIS [Suspect]
     Indication: PULMONARY ARTERIAL HYPERTENSION
     Route: 048
     Dates: start: 20090723
  2. OXYGEN [Concomitant]
  3. WARFARIN SODIUM [Concomitant]
     Indication: IDIOPATHIC PULMONARY FIBROSIS
  4. FUROSEMIDE [Concomitant]
     Indication: CARDIAC FAILURE CONGESTIVE
  5. SPIRONOLACTONE [Concomitant]
  6. COZAAR [Concomitant]
     Indication: CARDIAC FAILURE CONGESTIVE
  7. COREG [Concomitant]
     Indication: CARDIAC FAILURE CONGESTIVE
  8. METOPROLOL [Concomitant]
  9. PRAZOSIN HCL [Concomitant]
     Indication: BENIGN PROSTATIC HYPERPLASIA
  10. BACTRIM DS [Concomitant]
  11. PROTONIX [Concomitant]
     Indication: GASTROOESOPHAGEAL REFLUX DISEASE
  12. MECLIZINE [Concomitant]
     Indication: VERTIGO
  13. ACETAMINOPHEN [Concomitant]
  14. HYDROCODONE BITARTRATE AND ACETAMINOPHEN [Concomitant]
     Indication: PAIN
  15. PREDNISONE TAB [Concomitant]
     Indication: IDIOPATHIC PULMONARY FIBROSIS
  16. POTASSIUM CHLORIDE [Concomitant]
  17. BL VITAMIN C [Concomitant]

REACTIONS (4)
  - ASTHENIA [None]
  - DYSPNOEA [None]
  - IDIOPATHIC PULMONARY FIBROSIS [None]
  - LUNG DISORDER [None]
